FAERS Safety Report 9308654 (Version 1)
Quarter: 2013Q2

REPORT INFORMATION
  Report Type: Spontaneous
  Country: US (occurrence: US)
  Receive Date: 20130524
  Receipt Date: 20130524
  Transmission Date: 20140414
  Serious: Yes (Hospitalization, Other)
  Sender: FDA-Public Use
  Company Number: US-ASTRAZENECA-2013SE35185

PATIENT
  Age: 53 Year
  Sex: Female
  Weight: 88 kg

DRUGS (1)
  1. CRESTOR [Suspect]
     Indication: BLOOD CHOLESTEROL INCREASED
     Route: 048
     Dates: start: 20130404, end: 20130422

REACTIONS (8)
  - Facial bones fracture [Unknown]
  - Fall [Unknown]
  - Wrist fracture [Unknown]
  - Laceration [Unknown]
  - Joint swelling [Unknown]
  - Impaired work ability [Unknown]
  - Loss of consciousness [Unknown]
  - Nerve injury [Unknown]
